FAERS Safety Report 11850303 (Version 1)
Quarter: 2015Q4

REPORT INFORMATION
  Report Type: Report from Study
  Country: US (occurrence: US)
  Receive Date: 20151218
  Receipt Date: 20151218
  Transmission Date: 20160305
  Serious: Yes (Other)
  Sender: FDA-Public Use
  Company Number: US-JNJFOC-20151213002

PATIENT
  Age: 60 Year
  Sex: Male

DRUGS (3)
  1. AMITRIPTYLINE [Concomitant]
     Active Substance: AMITRIPTYLINE
  2. PERCOCET [Concomitant]
     Active Substance: ACETAMINOPHEN\OXYCODONE HYDROCHLORIDE
  3. IMBRUVICA [Suspect]
     Active Substance: IBRUTINIB
     Indication: CHRONIC LYMPHOCYTIC LEUKAEMIA
     Route: 048
     Dates: start: 201506, end: 20151207

REACTIONS (4)
  - Nervous system disorder [Unknown]
  - Peroneal nerve palsy [Unknown]
  - Neoplasm recurrence [Not Recovered/Not Resolved]
  - Urinary retention [Unknown]

NARRATIVE: CASE EVENT DATE: 201506
